FAERS Safety Report 20035620 (Version 2)
Quarter: 2021Q4

REPORT INFORMATION
  Report Type: Spontaneous
  Country: US (occurrence: US)
  Receive Date: 20211104
  Receipt Date: 20211117
  Transmission Date: 20220303
  Serious: Yes (Other)
  Sender: FDA-Public Use
  Company Number: US-TEVA-2021-US-1972726

PATIENT
  Age: 85 Year
  Sex: Male

DRUGS (2)
  1. BUDESONIDE [Suspect]
     Active Substance: BUDESONIDE
     Indication: Chronic obstructive pulmonary disease
     Dosage: 640 MICROGRAM DAILY;
     Route: 055
  2. FORMOTEROL [Concomitant]
     Active Substance: FORMOTEROL
     Indication: Chronic obstructive pulmonary disease
     Dosage: 18 MICROGRAM DAILY;
     Route: 055

REACTIONS (2)
  - Cryptococcosis [Recovering/Resolving]
  - Laryngeal cryptococcosis [Recovering/Resolving]
